FAERS Safety Report 12557930 (Version 1)
Quarter: 2016Q3

REPORT INFORMATION
  Report Type: Spontaneous
  Country: JP (occurrence: JP)
  Receive Date: 20160714
  Receipt Date: 20160714
  Transmission Date: 20161109
  Serious: Yes (Hospitalization)
  Sender: FDA-Public Use
  Company Number: JP-JNJFOC-20160707403

PATIENT

DRUGS (2)
  1. LENDORMIN [Concomitant]
     Active Substance: BROTIZOLAM
     Route: 048
  2. RISPERDAL [Suspect]
     Active Substance: RISPERIDONE
     Indication: SCHIZOPHRENIA
     Route: 048

REACTIONS (17)
  - Akathisia [Unknown]
  - Musculoskeletal stiffness [Unknown]
  - Off label use [Unknown]
  - Respiratory disorder [Unknown]
  - Dysarthria [Unknown]
  - Wrong technique in product usage process [Unknown]
  - Somnolence [Unknown]
  - Pseudo-blepharoptosis [Unknown]
  - Hyperhidrosis [Unknown]
  - Speech disorder [Unknown]
  - Restlessness [Unknown]
  - Incorrect product formulation administered [Unknown]
  - Tremor [Unknown]
  - Dizziness [Unknown]
  - Insomnia [Unknown]
  - Abnormal behaviour [Unknown]
  - Constipation [Unknown]
